FAERS Safety Report 8537211-X (Version None)
Quarter: 2012Q3

REPORT INFORMATION
  Report Type: 
  Country: None (occurrence: None)
  Receive Date: 20120725
  Receipt Date: 20120716
  Transmission Date: 20120928
  Serious: Yes (Hospitalization)
  Sender: FDA-Public Use
  Company Number: US-ACTELION-A-US2012-63522

PATIENT

DRUGS (3)
  1. TRACLEER [Suspect]
     Dosage: 62.5 MG, BID
     Route: 048
     Dates: start: 20110501
  2. TRACLEER [Suspect]
     Indication: PULMONARY ARTERIAL HYPERTENSION
     Dosage: 125 MG, BID
     Route: 048
     Dates: start: 20110601
  3. TADALAFIL [Concomitant]

REACTIONS (4)
  - CONFUSIONAL STATE [None]
  - SYSTEMIC LUPUS ERYTHEMATOSUS [None]
  - MENTAL DISABILITY [None]
  - PAIN [None]
